FAERS Safety Report 5271567-9 (Version None)
Quarter: 2007Q1

REPORT INFORMATION
  Report Type: 
  Country: None (occurrence: None)
  Receive Date: 20070321
  Receipt Date: 20070302
  Transmission Date: 20070707
  Serious: Yes (Other)
  Sender: FDA-Public Use
  Company Number: NL-PFIZER INC-2007021100

PATIENT

DRUGS (1)
  1. LIPITOR [Suspect]
     Indication: ANGINA PECTORIS
     Route: 048

REACTIONS (1)
  - LIVER DISORDER [None]
